FAERS Safety Report 10208200 (Version 1)
Quarter: 2014Q2

REPORT INFORMATION
  Report Type: Spontaneous
  Country: CA (occurrence: None)
  Receive Date: 20140529
  Receipt Date: 20140529
  Transmission Date: 20141212
  Serious: Yes (Death, Hospitalization)
  Sender: FDA-Public Use
  Company Number: None

PATIENT
  Age: 14 Year
  Sex: Female
  Weight: 64.7 kg

DRUGS (6)
  1. MERCAPTOPURINE [Suspect]
     Dates: end: 20140504
  2. METHOTREXATE [Suspect]
     Dates: end: 20140428
  3. PREDNISONE [Suspect]
     Dates: end: 20140502
  4. VINCRISTINE SULFATE [Suspect]
     Dates: end: 20140428
  5. CEFTRIAXONE [Concomitant]
  6. SEPTRA [Concomitant]

REACTIONS (11)
  - Urosepsis [None]
  - Bacteraemia [None]
  - Febrile neutropenia [None]
  - Blood pressure systolic increased [None]
  - Blood pressure diastolic decreased [None]
  - Bradycardia [None]
  - Blood pressure decreased [None]
  - Aspergillus test positive [None]
  - Influenza B virus test positive [None]
  - Acute respiratory failure [None]
  - Lung hyperinflation [None]
